FAERS Safety Report 9714027 (Version 2)
Quarter: 2015Q3

REPORT INFORMATION
  Report Type: Spontaneous
  Country: US (occurrence: US)
  Receive Date: 20131126
  Receipt Date: 20150803
  Transmission Date: 20151125
  Serious: No
  Sender: FDA-Public Use
  Company Number: US-GILEAD-2008-0018606

PATIENT
  Age: 42 Year
  Sex: Male
  Weight: 91.17 kg

DRUGS (24)
  1. METOLAZONE. [Concomitant]
     Active Substance: METOLAZONE
  2. MINOXIDIL. [Concomitant]
     Active Substance: MINOXIDIL
  3. TYLENOL EX-STRENGTH [Concomitant]
  4. PROTONIX [Concomitant]
     Active Substance: PANTOPRAZOLE SODIUM
  5. PAXIL [Concomitant]
     Active Substance: PAROXETINE HYDROCHLORIDE
  6. GLIPIZIDE. [Concomitant]
     Active Substance: GLIPIZIDE
  7. PROGRAF [Concomitant]
     Active Substance: TACROLIMUS\TACROLIMUS ANHYDROUS
  8. LASIX [Concomitant]
     Active Substance: FUROSEMIDE
  9. REVATIO [Concomitant]
     Active Substance: SILDENAFIL CITRATE
  10. DIGOXIN. [Concomitant]
     Active Substance: DIGOXIN
  11. VITAMIN D [Concomitant]
     Active Substance: CHOLECALCIFEROL
  12. ATIVAN [Concomitant]
     Active Substance: LORAZEPAM
  13. METOPROLOL [Concomitant]
     Active Substance: METOPROLOL
  14. ASPIRIN EC [Concomitant]
     Active Substance: ASPIRIN
  15. HYDRALAZINE [Concomitant]
     Active Substance: HYDRALAZINE HYDROCHLORIDE
  16. NORVASC [Concomitant]
     Active Substance: AMLODIPINE BESYLATE
  17. ALLOPURINOL. [Concomitant]
     Active Substance: ALLOPURINOL
  18. LETAIRIS [Suspect]
     Active Substance: AMBRISENTAN
     Indication: COR PULMONALE CHRONIC
     Route: 048
     Dates: start: 20080430
  19. COUMADIN [Concomitant]
     Active Substance: WARFARIN SODIUM
  20. PREDNISONE. [Concomitant]
     Active Substance: PREDNISONE
  21. FERROUS SULF [Concomitant]
  22. PRAVASTATIN [Concomitant]
     Active Substance: PRAVASTATIN\PRAVASTATIN SODIUM
  23. NOVOLIN N INSULIN [Concomitant]
  24. NOVOLOG INSULIN [Concomitant]

REACTIONS (3)
  - Abdominal pain upper [None]
  - Headache [None]
  - Peripheral swelling [None]
